FAERS Safety Report 9783460 (Version 1)
Quarter: 2013Q4

REPORT INFORMATION
  Report Type: Spontaneous
  Country: CL (occurrence: CL)
  Receive Date: 20131226
  Receipt Date: 20131226
  Transmission Date: 20140711
  Serious: Yes (Other)
  Sender: FDA-Public Use
  Company Number: CL-PFIZER INC-2013365933

PATIENT
  Age: 76 Year
  Sex: Female

DRUGS (1)
  1. XALATAN [Suspect]
     Indication: GLAUCOMA
     Dosage: 1 GTT PER EYE AT NIGHT, 1X/DAY
     Route: 047
     Dates: start: 2008

REACTIONS (2)
  - Breast cancer [Not Recovered/Not Resolved]
  - Hyperkeratosis [Not Recovered/Not Resolved]
